FAERS Safety Report 4871805-8 (Version None)
Quarter: 2006Q1

REPORT INFORMATION
  Report Type: 
  Country: None (occurrence: None)
  Receive Date: 20060104
  Receipt Date: 20051228
  Transmission Date: 20060701
  Serious: Yes (Hospitalization)
  Sender: FDA-Public Use
  Company Number: FR-GLAXOSMITHKLINE-B0404995A

PATIENT
  Age: 83 Year
  Sex: Female

DRUGS (4)
  1. AUGMENTIN '125' [Suspect]
     Indication: MENINGITIS
     Dosage: 3G PER DAY
     Route: 042
     Dates: start: 20051029, end: 20051108
  2. CALCIPARINE [Concomitant]
     Dosage: .75ML PER DAY
     Route: 058
     Dates: start: 20051029
  3. CEFTRIAXONE [Concomitant]
     Indication: MENINGITIS
     Dosage: 1G PER DAY
     Route: 042
     Dates: start: 20051027, end: 20051027
  4. DEPAKENE [Concomitant]
     Route: 065

REACTIONS (1)
  - PURPURA [None]
